FAERS Safety Report 19190880 (Version 5)
Quarter: 2021Q3

REPORT INFORMATION
  Report Type: Report from Study
  Country: US (occurrence: US)
  Receive Date: 20210428
  Receipt Date: 20210712
  Transmission Date: 20211014
  Serious: Yes (Hospitalization)
  Sender: FDA-Public Use
  Company Number: NVSC2021US094072

PATIENT
  Age: 1 Year
  Sex: Female

DRUGS (1)
  1. ZOLGENSMA [Suspect]
     Active Substance: ONASEMNOGENE ABEPARVOVEC-XIOI
     Indication: SPINAL MUSCULAR ATROPHY
     Dosage: UNK UNK, ONCE/SINGLE
     Route: 042
     Dates: start: 20210421, end: 20210421

REACTIONS (4)
  - Pyrexia [Unknown]
  - Platelet count decreased [Recovering/Resolving]
  - Vomiting [Unknown]
  - Hepatic enzyme increased [Recovering/Resolving]

NARRATIVE: CASE EVENT DATE: 20210423
